FAERS Safety Report 7113750-3 (Version None)
Quarter: 2010Q4

REPORT INFORMATION
  Report Type: 
  Country: None (occurrence: None)
  Receive Date: 20101119
  Receipt Date: 20101116
  Transmission Date: 20110411
  Serious: Yes (Death, Hospitalization)
  Sender: FDA-Public Use
  Company Number: GB-PFIZER INC-2007088600

PATIENT
  Age: 64 Year
  Sex: Female
  Weight: 76 kg

DRUGS (10)
  1. SUNITINIB MALATE [Suspect]
     Indication: RENAL CELL CARCINOMA
     Dosage: 25 MG, 1X/DAY, 4 WEEKS ON AND 2 WEEKS OFF
     Route: 048
     Dates: start: 20060724, end: 20071005
  2. ATENOLOL [Concomitant]
     Dosage: 100 MG, UNK
     Route: 048
     Dates: start: 19960101
  3. ENALAPRIL [Concomitant]
     Dosage: 40 MG, UNK
     Route: 048
     Dates: start: 20010101
  4. AMLODIPINE [Concomitant]
     Dosage: 5 MG, UNK
     Route: 048
     Dates: start: 20070101
  5. PIOGLITAZONE [Concomitant]
     Dosage: 15 MG, UNK
     Route: 048
     Dates: start: 20050301
  6. DIAMICRON [Concomitant]
     Dosage: 30 MG, UNK
     Route: 048
     Dates: start: 20050301
  7. PRILOSEC [Concomitant]
     Route: 048
     Dates: start: 20070101
  8. METOCLOPRAMIDE [Concomitant]
     Route: 048
     Dates: start: 20060821
  9. CO-CODAMOL [Concomitant]
     Route: 048
     Dates: start: 20060831
  10. LOPERAMIDE [Concomitant]
     Route: 048
     Dates: start: 20060821

REACTIONS (6)
  - ANAEMIA [None]
  - DISEASE PROGRESSION [None]
  - DYSPNOEA [None]
  - HYPOCALCAEMIA [None]
  - HYPOMAGNESAEMIA [None]
  - RENAL CELL CARCINOMA [None]
